FAERS Safety Report 4291342-1 (Version None)
Quarter: 2004Q1

REPORT INFORMATION
  Report Type: 
  Country: None (occurrence: None)
  Receive Date: 20040206
  Receipt Date: 20040206
  Transmission Date: 20041129
  Serious: Yes (Hospitalization)
  Sender: FDA-Public Use
  Company Number: None

PATIENT
  Age: 68 Year
  Sex: Female

DRUGS (13)
  1. TAMOXIFEN [Suspect]
     Indication: BREAST CANCER
     Dosage: 20 MG /DAY
     Dates: start: 20030602
  2. TAMOXIFEN [Suspect]
     Indication: PROPHYLAXIS
     Dosage: 20 MG /DAY
     Dates: start: 20030602
  3. RALOXIFENE HCL [Suspect]
     Indication: BREAST CANCER
     Dosage: 60 MG /DAY
     Dates: start: 20030602
  4. RALOXIFENE HCL [Suspect]
     Indication: PROPHYLAXIS
     Dosage: 60 MG /DAY
     Dates: start: 20030602
  5. EFFEXOR [Concomitant]
  6. CLONAZEPAM [Concomitant]
  7. HYDROCHLOROTHIAZIDE [Concomitant]
  8. LOVASTATIN [Concomitant]
  9. SYNTHROID [Concomitant]
  10. ZANTAC [Concomitant]
  11. M.V.I. [Concomitant]
  12. OS-CAL [Concomitant]
  13. ASPIRIN [Concomitant]

REACTIONS (11)
  - ABDOMINAL PAIN [None]
  - COUGH [None]
  - DECREASED APPETITE [None]
  - MENTAL STATUS CHANGES [None]
  - MICTURITION URGENCY [None]
  - NAUSEA [None]
  - PNEUMONIA [None]
  - PYREXIA [None]
  - SPUTUM DISCOLOURED [None]
  - URINARY TRACT INFECTION [None]
  - VOMITING [None]
